FAERS Safety Report 11307815 (Version 2)
Quarter: 2015Q3

REPORT INFORMATION
  Report Type: Spontaneous
  Country: US (occurrence: US)
  Receive Date: 20150724
  Receipt Date: 20150727
  Transmission Date: 20151125
  Serious: No
  Sender: FDA-Public Use
  Company Number: US-ASTRAZENECA-2015SE69301

PATIENT
  Sex: Female
  Weight: 63.5 kg

DRUGS (3)
  1. PULMICORT FLEXHALER [Suspect]
     Active Substance: BUDESONIDE
     Indication: ASTHMA
     Route: 055
     Dates: start: 20150601
  2. PULMICORT FLEXHALER [Suspect]
     Active Substance: BUDESONIDE
     Indication: DYSPNOEA
     Route: 055
     Dates: start: 20150601
  3. PULMICORT FLEXHALER [Suspect]
     Active Substance: BUDESONIDE
     Indication: PSEUDOLYMPHOMA
     Route: 055
     Dates: start: 20150601

REACTIONS (6)
  - Intentional product misuse [Unknown]
  - Product quality issue [Unknown]
  - Off label use [Unknown]
  - Heart rate irregular [Unknown]
  - Underdose [Unknown]
  - Product use issue [Unknown]
